FAERS Safety Report 13507222 (Version 1)
Quarter: 2017Q2

REPORT INFORMATION
  Report Type: Spontaneous
  Country: US (occurrence: US)
  Receive Date: 20170503
  Receipt Date: 20170503
  Transmission Date: 20170830
  Serious: No
  Sender: FDA-Public Use
  Company Number: US-TEVA-739428ACC

PATIENT
  Age: 35 Year
  Sex: Female
  Weight: 65.83 kg

DRUGS (1)
  1. EQ MICON 7 DISPOSAL [Suspect]
     Active Substance: MICONAZOLE
     Dates: start: 20170106, end: 20170110

REACTIONS (2)
  - Burning sensation [Unknown]
  - Pain [Unknown]

NARRATIVE: CASE EVENT DATE: 20170106
